FAERS Safety Report 23316158 (Version 1)
Quarter: 2023Q4

REPORT INFORMATION
  Report Type: Spontaneous
  Country: DE (occurrence: DE)
  Receive Date: 20231219
  Receipt Date: 20231219
  Transmission Date: 20240110
  Serious: Yes (Hospitalization)
  Sender: FDA-Public Use
  Company Number: DE-ROCHE-3174827

PATIENT
  Age: 63 Year
  Sex: Female

DRUGS (14)
  1. BEVACIZUMAB [Suspect]
     Active Substance: BEVACIZUMAB
     Dosage: 1125 MG (MOST RECENT DOSE PRIOR TO AE/SAE)
     Route: 042
     Dates: start: 20221010
  2. BEVACIZUMAB [Suspect]
     Active Substance: BEVACIZUMAB
     Indication: Neoplasm
     Dosage: 15 MG/KG, Q3W
     Route: 042
     Dates: start: 20220829
  3. CARBOPLATIN [Suspect]
     Active Substance: CARBOPLATIN
     Dosage: 503 MG, Q3W
     Route: 042
     Dates: start: 20221010
  4. CARBOPLATIN [Suspect]
     Active Substance: CARBOPLATIN
     Indication: Neoplasm
     Dosage: 503 MG, Q3W (ON 29 AUG 2022, LAST DOSE (503 MG) OF CANCER TREATMENT WAS ADMINISTERED PRIOR TO AE/SAE
     Route: 042
     Dates: start: 20220829
  5. PACLITAXEL [Suspect]
     Active Substance: PACLITAXEL
     Indication: Neoplasm malignant
     Dosage: 175 MG/M2, Q3W (ON 29 AUG 2022, LAST DOSE OF CANCER TREATMENT WAS ADMINISTERED PRIOR TO AE/SAE)
     Route: 042
     Dates: start: 20220829
  6. PACLITAXEL [Suspect]
     Active Substance: PACLITAXEL
     Dosage: 312 MG (MOST RECENT DOSE PRIOR TO AE/SAE)
     Route: 042
     Dates: start: 20221010
  7. ATORVASTATIN [Concomitant]
     Active Substance: ATORVASTATIN
     Indication: Neoplasm malignant
     Route: 065
  8. HYDROCHLOROTHIAZIDE [Concomitant]
     Active Substance: HYDROCHLOROTHIAZIDE
     Indication: Product used for unknown indication
     Dosage: 12.500MG
     Route: 065
  9. ONDANSETRON [Concomitant]
     Active Substance: ONDANSETRON
     Indication: Product used for unknown indication
     Dosage: 4.000MG
     Route: 065
  10. OXYCODONE [Concomitant]
     Active Substance: OXYCODONE
     Indication: Product used for unknown indication
     Dosage: 5.000MG
     Route: 065
  11. PANTOPRAZOLE [Concomitant]
     Active Substance: PANTOPRAZOLE
     Indication: Product used for unknown indication
     Dosage: 40 MG, QD
     Route: 065
  12. PREGABALIN [Concomitant]
     Active Substance: PREGABALIN
     Indication: Product used for unknown indication
     Dosage: 150 MG, 0.5 DAY, STRENGTH: 25, 75, 100, 50, 225, 300, 150 MG
     Route: 065
  13. RAMIPRIL [Concomitant]
     Active Substance: RAMIPRIL
     Indication: Product used for unknown indication
     Dosage: 5.000MG
     Route: 065
  14. XARELTO [Concomitant]
     Active Substance: RIVAROXABAN
     Indication: Neoplasm malignant
     Dosage: 15.000MG; STRENGTH: 2.5 MG, 20 MG, 15 MG, 1 MG/ML
     Route: 065

REACTIONS (6)
  - Dysphagia [Recovered/Resolved]
  - General physical health deterioration [Recovered/Resolved]
  - Abdominal pain upper [Recovered/Resolved]
  - Neuropathy peripheral [Not Recovered/Not Resolved]
  - Abdominal pain lower [Recovered/Resolved]
  - Abdominal pain upper [Recovered/Resolved]

NARRATIVE: CASE EVENT DATE: 20220905
